FAERS Safety Report 4464126-9 (Version None)
Quarter: 2004Q4

REPORT INFORMATION
  Report Type: 
  Country: None (occurrence: None)
  Receive Date: 20041001
  Receipt Date: 20040922
  Transmission Date: 20050328
  Serious: Yes (Other)
  Sender: FDA-Public Use
  Company Number: ES-JNJFOC-20040907985

PATIENT
  Sex: Male

DRUGS (2)
  1. REMICADE [Suspect]
     Indication: DRUG USE FOR UNKNOWN INDICATION
     Route: 042
  2. AZATHIOPRINE [Concomitant]

REACTIONS (1)
  - DISSEMINATED TUBERCULOSIS [None]
